FAERS Safety Report 6704174-9 (Version None)
Quarter: 2010Q2

REPORT INFORMATION
  Report Type: 
  Country: None (occurrence: None)
  Receive Date: 20100430
  Receipt Date: 20100421
  Transmission Date: 20101027
  Serious: Yes (Life-Threatening, Hospitalization, Other)
  Sender: FDA-Public Use
  Company Number: US-AMGEN-QUU407878

PATIENT
  Sex: Male

DRUGS (8)
  1. NPLATE [Suspect]
     Indication: IDIOPATHIC THROMBOCYTOPENIC PURPURA
     Dates: start: 20090422
  2. CORTICOSTEROIDS [Concomitant]
     Dates: start: 20070503
  3. AMLODIPINE [Concomitant]
     Route: 048
  4. CLONIDINE [Concomitant]
     Route: 048
  5. FOLIC ACID [Concomitant]
  6. OMEPRAZOLE [Concomitant]
     Route: 048
  7. PREDNISONE [Concomitant]
     Route: 048
  8. FLOMAX [Concomitant]

REACTIONS (5)
  - DEEP VEIN THROMBOSIS [None]
  - HERPES ZOSTER [None]
  - PLEURAL EFFUSION [None]
  - PULMONARY EMBOLISM [None]
  - RENAL FAILURE ACUTE [None]
